FAERS Safety Report 25421143 (Version 2)
Quarter: 2025Q3

REPORT INFORMATION
  Report Type: Report from Study
  Country: CA (occurrence: CA)
  Receive Date: 20250611
  Receipt Date: 20250730
  Transmission Date: 20251020
  Serious: Yes (Death, Hospitalization, Other)
  Sender: BAUSCH AND LOMB
  Company Number: CA-BAUSCH-BL-2025-007064

PATIENT
  Age: 73 Year
  Sex: Male

DRUGS (2)
  1. SILIQ [Suspect]
     Active Substance: BRODALUMAB
     Indication: Psoriasis
     Dosage: 210 MG / 1.5 ML, WEEKLY (WEEK 0-2)
     Route: 058
     Dates: start: 20210519, end: 202106
  2. SILIQ [Suspect]
     Active Substance: BRODALUMAB
     Dosage: 210 MG / 1.5 ML, EVERY 2 WEEKS
     Route: 058
     Dates: start: 202106

REACTIONS (11)
  - Malignant splenic neoplasm [Fatal]
  - Hospitalisation [Unknown]
  - Lymphoma [Recovered/Resolved]
  - Weight decreased [Unknown]
  - Feeding tube user [Unknown]
  - Oxygen saturation abnormal [Unknown]
  - Blood test abnormal [Unknown]
  - Decreased appetite [Unknown]
  - Disease recurrence [Unknown]
  - Psoriasis [Unknown]
  - Therapy cessation [Unknown]

NARRATIVE: CASE EVENT DATE: 20250101
